FAERS Safety Report 25410780 (Version 4)
Quarter: 2025Q3

REPORT INFORMATION
  Report Type: Spontaneous
  Country: JP (occurrence: JP)
  Receive Date: 20250609
  Receipt Date: 20250918
  Transmission Date: 20251021
  Serious: Yes (Other)
  Sender: GALDERMA
  Company Number: JP-GALDERMA-JP2025004120

PATIENT

DRUGS (6)
  1. NEMOLIZUMAB [Suspect]
     Active Substance: NEMOLIZUMAB
     Indication: Neurodermatitis
     Route: 058
     Dates: start: 20250208, end: 20250208
  2. Myser [Concomitant]
     Indication: Neurodermatitis
     Route: 061
     Dates: start: 20241118, end: 20250304
  3. Remicut [Concomitant]
     Indication: Neurodermatitis
     Route: 048
     Dates: start: 20241224, end: 20250218
  4. NALFURAFINE HYDROCHLORIDE [Concomitant]
     Active Substance: NALFURAFINE HYDROCHLORIDE
     Indication: Neurodermatitis
     Route: 048
     Dates: start: 20241224, end: 20250218
  5. NEUROTROPIN [Concomitant]
     Active Substance: NEUROTROPIN
     Indication: Neurodermatitis
     Dates: start: 20241224, end: 20250307
  6. Histaglobin [Concomitant]
     Indication: Neurodermatitis
     Route: 058
     Dates: start: 20241224, end: 20250307

REACTIONS (1)
  - Pemphigoid [Recovering/Resolving]

NARRATIVE: CASE EVENT DATE: 20250226
